FAERS Safety Report 6609427-0 (Version None)
Quarter: 2010Q1

REPORT INFORMATION
  Report Type: 
  Country: None (occurrence: None)
  Receive Date: 20100302
  Receipt Date: 20100222
  Transmission Date: 20100710
  Serious: Yes (Hospitalization)
  Sender: FDA-Public Use
  Company Number: JP-ASTRAZENECA-2010SE07781

PATIENT
  Age: 35 Year
  Sex: Female

DRUGS (1)
  1. ANAPEINE [Suspect]
     Indication: EPIDURAL ANAESTHESIA
     Dosage: 0.2% PER DAY.
     Route: 008
     Dates: start: 20100217, end: 20100217

REACTIONS (1)
  - MONOPLEGIA [None]
